FAERS Safety Report 10207805 (Version 1)
Quarter: 2014Q2

REPORT INFORMATION
  Report Type: Spontaneous
  Country: US (occurrence: None)
  Receive Date: 20140529
  Receipt Date: 20140529
  Transmission Date: 20141212
  Serious: Yes (Life-Threatening)
  Sender: FDA-Public Use
  Company Number: None

PATIENT
  Age: 13 Year
  Sex: Male
  Weight: 52.62 kg

DRUGS (1)
  1. BACTRIM [Suspect]
     Indication: ACNE
     Route: 048
     Dates: start: 20140203, end: 20140322

REACTIONS (2)
  - Liver function test abnormal [None]
  - Drug hypersensitivity [None]
